FAERS Safety Report 20148482 (Version 1)
Quarter: 2021Q4

REPORT INFORMATION
  Report Type: Spontaneous
  Country: US (occurrence: US)
  Receive Date: 20211204
  Receipt Date: 20211204
  Transmission Date: 20220303
  Serious: No
  Sender: FDA-Public Use
  Company Number: US-SA-SAC20211201000772

PATIENT
  Age: 25 Year
  Sex: Male

DRUGS (1)
  1. DUPIXENT [Suspect]
     Active Substance: DUPILUMAB
     Dosage: 300 MG, OTHER
     Route: 058
     Dates: start: 20191120

REACTIONS (5)
  - Erythema [Unknown]
  - Pruritus [Unknown]
  - Facial pain [Unknown]
  - Hyperhidrosis [Unknown]
  - Skin irritation [Unknown]

NARRATIVE: CASE EVENT DATE: 20201117
